FAERS Safety Report 16756853 (Version 2)
Quarter: 2019Q3

REPORT INFORMATION
  Report Type: Report from Study
  Country: AR (occurrence: AR)
  Receive Date: 20190829
  Receipt Date: 20190911
  Transmission Date: 20191005
  Serious: Yes (Other)
  Sender: FDA-Public Use
  Company Number: PHHY2019AR200432

PATIENT
  Sex: Female

DRUGS (12)
  1. GALVUS MET [Suspect]
     Active Substance: METFORMIN HYDROCHLORIDE\VILDAGLIPTIN
     Indication: TYPE 2 DIABETES MELLITUS
     Dosage: UNK UNK, BID (1000 METFORMIN, 50 VILDAGLIPTIN)
     Route: 065
     Dates: start: 20190514, end: 20190611
  2. GALVUS [Suspect]
     Active Substance: VILDAGLIPTIN
     Indication: TYPE 2 DIABETES MELLITUS
     Dosage: 50 MG, QD (BEFORE LUNCH)
     Route: 048
     Dates: start: 20190813
  3. DIOCAM [Concomitant]
     Indication: ANXIOLYTIC THERAPY
     Dosage: 0.5 DF, UNK (STARTED 9 YEARS BEFORE)
     Route: 065
  4. GLUCEMIX [Suspect]
     Active Substance: VILDAGLIPTIN
     Indication: PRODUCT USED FOR UNKNOWN INDICATION
     Dosage: UNK
     Route: 065
  5. METFORMIN [Suspect]
     Active Substance: METFORMIN HYDROCHLORIDE
     Indication: TYPE 2 DIABETES MELLITUS
     Dosage: 850 MG, BID (BEFORE LUNCH AND IN THE AFTERNOON)
     Route: 065
     Dates: start: 20190813
  6. GLUCEMIX MET [Suspect]
     Active Substance: METFORMIN HYDROCHLORIDE\VILDAGLIPTIN
     Indication: PRODUCT USED FOR UNKNOWN INDICATION
     Dosage: UNK
     Route: 065
     Dates: start: 20190514, end: 201906
  7. ZOMARIST MET [METFORMIN HYDROCHLORIDE;VILDAGLIPTIN] [Suspect]
     Active Substance: METFORMIN HYDROCHLORIDE\VILDAGLIPTIN
     Indication: TYPE 2 DIABETES MELLITUS
     Dosage: UNK
     Route: 065
     Dates: end: 20190514
  8. ZOMARIST MET [METFORMIN HYDROCHLORIDE;VILDAGLIPTIN] [Suspect]
     Active Substance: METFORMIN HYDROCHLORIDE\VILDAGLIPTIN
     Dosage: UNK, QD
     Route: 065
     Dates: start: 20190611, end: 20190813
  9. GLICLAZIDE [Concomitant]
     Active Substance: GLICLAZIDE
     Indication: PRODUCT USED FOR UNKNOWN INDICATION
     Dosage: UNK
     Route: 065
  10. RANITIDINE. [Concomitant]
     Active Substance: RANITIDINE
     Indication: PRODUCT USED FOR UNKNOWN INDICATION
     Dosage: UNK
     Route: 065
  11. OMEPRAZOLE. [Concomitant]
     Active Substance: OMEPRAZOLE
     Indication: PRODUCT USED FOR UNKNOWN INDICATION
     Dosage: UNK (STARTED A WHILE AGO)
     Route: 065
  12. ZOMARIST MET [METFORMIN HYDROCHLORIDE;VILDAGLIPTIN] [Suspect]
     Active Substance: METFORMIN HYDROCHLORIDE\VILDAGLIPTIN
     Indication: PRODUCT USED FOR UNKNOWN INDICATION
     Dosage: UNK
     Route: 065
     Dates: start: 201906

REACTIONS (6)
  - Dermal cyst [Recovered/Resolved]
  - Decreased appetite [Unknown]
  - Seborrhoea [Unknown]
  - Blood glucose fluctuation [Unknown]
  - Blood glucose increased [Not Recovered/Not Resolved]
  - Weight decreased [Unknown]

NARRATIVE: CASE EVENT DATE: 201902
